FAERS Safety Report 9310693 (Version 1)
Quarter: 2013Q2

REPORT INFORMATION
  Report Type: Spontaneous
  Country: JP (occurrence: JP)
  Receive Date: 20130527
  Receipt Date: 20130527
  Transmission Date: 20140414
  Serious: Yes (Hospitalization)
  Sender: FDA-Public Use
  Company Number: JP-ROCHE-1227130

PATIENT
  Age: 60 Year
  Sex: Male

DRUGS (6)
  1. BEVACIZUMAB [Suspect]
     Indication: COLON CANCER
     Dosage: EIGHT CYCLES OF CHEMOTHERAPY
     Route: 065
  2. BEVACIZUMAB [Suspect]
     Indication: METASTASES TO LIVER
  3. CAPECITABINE [Suspect]
     Indication: COLON CANCER
     Dosage: FIRST CYCLE XELOX
     Route: 065
  4. CAPECITABINE [Suspect]
     Indication: METASTASES TO LIVER
  5. OXALIPLATIN [Suspect]
     Indication: METASTASES TO LIVER
     Dosage: FIRST CYCLE XELOX
     Route: 065
  6. OXALIPLATIN [Suspect]
     Indication: COLON CANCER

REACTIONS (5)
  - Intestinal obstruction [Unknown]
  - Diarrhoea [Unknown]
  - Nausea [Unknown]
  - Venoocclusive liver disease [Unknown]
  - Liver injury [Unknown]
